FAERS Safety Report 10266673 (Version 1)
Quarter: 2014Q2

REPORT INFORMATION
  Report Type: Spontaneous
  Country: US (occurrence: None)
  Receive Date: 20140625
  Receipt Date: 20140625
  Transmission Date: 20141212
  Serious: Yes (Other)
  Sender: FDA-Public Use
  Company Number: None

PATIENT
  Age: 65 Year
  Sex: Male
  Weight: 92.08 kg

DRUGS (1)
  1. FOSAMAX [Suspect]
     Indication: POLYMYALGIA RHEUMATICA
     Dosage: 1 PILL  ONCE A WEEK TAKEN BY MOUTH
     Route: 048

REACTIONS (4)
  - Diarrhoea [None]
  - Arthralgia [None]
  - Peripheral swelling [None]
  - Musculoskeletal stiffness [None]
